FAERS Safety Report 7352526-9 (Version None)
Quarter: 2011Q1

REPORT INFORMATION
  Report Type: 
  Country: None (occurrence: None)
  Receive Date: 20110301
  Receipt Date: 20100415
  Transmission Date: 20110831
  Serious: Yes (Hospitalization)
  Sender: FDA-Public Use
  Company Number: RB-07127-2010

PATIENT
  Sex: Female

DRUGS (2)
  1. SUBUTEX [Suspect]
     Indication: DRUG DEPENDENCE
     Dosage: (8 MG BID TRANSPLACENTAL)
     Route: 064
     Dates: start: 20091101, end: 20100324
  2. SUBOXONE [Suspect]
     Indication: DRUG DEPENDENCE
     Dosage: (8 MG BID TRANSPLACENTAL)
     Route: 064
     Dates: start: 20090601, end: 20100324

REACTIONS (1)
  - DRUG WITHDRAWAL SYNDROME NEONATAL [None]
